FAERS Safety Report 5929265-1 (Version None)
Quarter: 2008Q4

REPORT INFORMATION
  Report Type: 
  Country: None (occurrence: None)
  Receive Date: 20081021
  Receipt Date: 20081013
  Transmission Date: 20090506
  Serious: Yes (Hospitalization)
  Sender: FDA-Public Use
  Company Number: FRP08000987

PATIENT
  Age: 88 Year
  Sex: Female
  Weight: 42 kg

DRUGS (6)
  1. ACTONEL [Suspect]
     Indication: OSTEOPOROSIS
     Dosage: ONCE A WEEK, ORAL
     Route: 048
     Dates: start: 20080602, end: 20080615
  2. PREDNISOLONE [Concomitant]
  3. KARDEGIC /00002703/ (ACETYLSALICYLATE LYSINE) [Concomitant]
  4. SOTALOL HCL [Concomitant]
  5. VASTAREL (TRIMETAZIDINE HYDROCHLORIDE) [Concomitant]
  6. UVEDOSE (COLECALCIFEROL) [Concomitant]

REACTIONS (5)
  - ANAEMIA [None]
  - HYPERTENSION [None]
  - INTRA-ABDOMINAL HAEMANGIOMA [None]
  - RENAL FAILURE ACUTE [None]
  - RENAL TUBULAR DISORDER [None]
